FAERS Safety Report 24853685 (Version 1)
Quarter: 2025Q1

REPORT INFORMATION
  Report Type: Spontaneous
  Country: US (occurrence: US)
  Receive Date: 20250117
  Receipt Date: 20250117
  Transmission Date: 20250409
  Serious: No
  Sender: INDOCO REMEDIES LIMITED
  Company Number: US-INDOCO-IND-2024-US-SPO-00425

PATIENT
  Age: 86 Year
  Sex: Female

DRUGS (7)
  1. DORZOLAMIDE HYDROCHLORIDE\TIMOLOL MALEATE [Suspect]
     Active Substance: DORZOLAMIDE HYDROCHLORIDE\TIMOLOL MALEATE
     Indication: Product used for unknown indication
     Route: 047
     Dates: start: 20241203
  2. DORZOLAMIDE HYDROCHLORIDE\TIMOLOL MALEATE [Suspect]
     Active Substance: DORZOLAMIDE HYDROCHLORIDE\TIMOLOL MALEATE
     Route: 047
     Dates: start: 202401
  3. DORZOLAMIDE HYDROCHLORIDE\TIMOLOL MALEATE [Suspect]
     Active Substance: DORZOLAMIDE HYDROCHLORIDE\TIMOLOL MALEATE
     Route: 047
     Dates: start: 20241204
  4. LATANOPROST [Concomitant]
     Active Substance: LATANOPROST
     Indication: Product used for unknown indication
     Route: 047
  5. BRIMONIDINE [Concomitant]
     Active Substance: BRIMONIDINE TARTRATE
     Indication: Product used for unknown indication
     Route: 065
  6. RHOPRESSA [Concomitant]
     Active Substance: NETARSUDIL MESYLATE
     Indication: Product used for unknown indication
     Route: 065
  7. LOSARTAN [Concomitant]
     Active Substance: LOSARTAN
     Route: 065

REACTIONS (3)
  - Eye irritation [Unknown]
  - Product quality issue [Unknown]
  - Product with quality issue administered [Unknown]

NARRATIVE: CASE EVENT DATE: 20241203
